FAERS Safety Report 15906409 (Version 1)
Quarter: 2019Q1

REPORT INFORMATION
  Report Type: Spontaneous
  Country: US (occurrence: US)
  Receive Date: 20190204
  Receipt Date: 20190204
  Transmission Date: 20190417
  Serious: No
  Sender: FDA-Public Use
  Company Number: US-SA-2019SA024672

PATIENT

DRUGS (1)
  1. LEUKINE [Suspect]
     Active Substance: SARGRAMOSTIM
     Dosage: UNK UNK, UNK
     Route: 065

REACTIONS (1)
  - Product label issue [Unknown]
